FAERS Safety Report 8032718-6 (Version None)
Quarter: 2011Q4

REPORT INFORMATION
  Report Type: 
  Country: None (occurrence: None)
  Receive Date: 20111229
  Receipt Date: 20111216
  Transmission Date: 20120403
  Serious: Yes (Other)
  Sender: FDA-Public Use
  Company Number: DSA_48606_2011

PATIENT
  Age: 46 Year
  Sex: Female

DRUGS (1)
  1. DILTIAZEM HYDROCHLORIDE [Suspect]
     Indication: PRODUCT USED FOR UNKNOWN INDICATION
     Dosage: (60MG PER DAY, FREQUENCY UNKNOWN), (30MG PER DAY, FREQUENCY UNKNOWN)

REACTIONS (1)
  - HYPERTENSIVE CRISIS [None]
